FAERS Safety Report 7290776-0 (Version None)
Quarter: 2011Q1

REPORT INFORMATION
  Report Type: 
  Country: None (occurrence: None)
  Receive Date: 20110214
  Receipt Date: 20110207
  Transmission Date: 20110831
  Serious: Yes (Other)
  Sender: FDA-Public Use
  Company Number: US-ALEXION-A201100039

PATIENT
  Sex: Male

DRUGS (4)
  1. IRON [Concomitant]
     Dosage: UNK
     Route: 042
  2. GERITOL                            /00543501/ [Concomitant]
     Dosage: UNK,QD
  3. SOLIRIS [Suspect]
     Indication: PAROXYSMAL NOCTURNAL HAEMOGLOBINURIA
     Dosage: UNK
     Route: 042
     Dates: start: 20110106
  4. IRON SULFATETHIAMIN COMPOUND TAB [Concomitant]
     Dosage: UNK
     Route: 048

REACTIONS (7)
  - PNEUMONIA [None]
  - DYSPNOEA [None]
  - BACK PAIN [None]
  - ASTHENIA [None]
  - NECK PAIN [None]
  - PYREXIA [None]
  - HEART RATE DECREASED [None]
